FAERS Safety Report 7372820-5 (Version None)
Quarter: 2011Q1

REPORT INFORMATION
  Report Type: 
  Country: None (occurrence: None)
  Receive Date: 20110324
  Receipt Date: 20110315
  Transmission Date: 20110831
  Serious: Yes (Hospitalization)
  Sender: FDA-Public Use
  Company Number: NL-MEDIMMUNE-MEDI-0012940

PATIENT
  Sex: Male

DRUGS (2)
  1. SYNAGIS [Suspect]
     Route: 030
     Dates: start: 20110217, end: 20110217
  2. SYNAGIS [Suspect]
     Route: 030
     Dates: start: 20110314, end: 20110314

REACTIONS (4)
  - ATRIAL SEPTAL DEFECT [None]
  - GROWTH RETARDATION [None]
  - VENTRICULAR SEPTAL DEFECT [None]
  - WEIGHT DECREASED [None]
